FAERS Safety Report 17968039 (Version 5)
Quarter: 2020Q3

REPORT INFORMATION
  Report Type: Report from Study
  Country: US (occurrence: US)
  Receive Date: 20200701
  Receipt Date: 20200822
  Transmission Date: 20201103
  Serious: Yes (Hospitalization)
  Sender: FDA-Public Use
  Company Number: NVSC2020US182773

PATIENT
  Age: 56 Year
  Sex: Female

DRUGS (2)
  1. MAYZENT [Suspect]
     Active Substance: SIPONIMOD
     Dosage: 2 MG, QD
     Route: 048
     Dates: start: 20200818, end: 20200818
  2. MAYZENT [Suspect]
     Active Substance: SIPONIMOD
     Indication: MULTIPLE SCLEROSIS
     Dosage: 2 MG, QD
     Route: 048
     Dates: start: 20200625, end: 20200630

REACTIONS (5)
  - Chest discomfort [Unknown]
  - Heart rate decreased [Recovered/Resolved]
  - Heart rate decreased [Recovered/Resolved]
  - Illness [Unknown]
  - Coronavirus test positive [Unknown]

NARRATIVE: CASE EVENT DATE: 20200625
